FAERS Safety Report 22324656 (Version 1)
Quarter: 2023Q2

REPORT INFORMATION
  Report Type: Spontaneous
  Country: FR (occurrence: FR)
  Receive Date: 20230516
  Receipt Date: 20230516
  Transmission Date: 20230721
  Serious: Yes (Other)
  Sender: FDA-Public Use
  Company Number: FR-AFSSAPS-MA2023000870

PATIENT
  Age: 76 Year
  Sex: Male

DRUGS (2)
  1. AZITHROMYCIN [Suspect]
     Active Substance: AZITHROMYCIN
     Indication: Mycobacterium ulcerans infection
     Dosage: UNK
     Route: 048
     Dates: start: 202212
  2. CILASTATIN SODIUM\IMIPENEM [Suspect]
     Active Substance: CILASTATIN SODIUM\IMIPENEM
     Indication: Mycobacterium ulcerans infection
     Dosage: UNK
     Route: 065
     Dates: start: 202212

REACTIONS (4)
  - Blood creatinine increased [Unknown]
  - Eosinophilia [Unknown]
  - Rash pruritic [Recovering/Resolving]
  - Pustule [Recovering/Resolving]

NARRATIVE: CASE EVENT DATE: 20230201
